FAERS Safety Report 22120933 (Version 3)
Quarter: 2023Q2

REPORT INFORMATION
  Report Type: Report from Study
  Country: IN (occurrence: IN)
  Receive Date: 20230321
  Receipt Date: 20230605
  Transmission Date: 20230721
  Serious: Yes (Hospitalization)
  Sender: FDA-Public Use
  Company Number: IN-SAREPTA THERAPEUTICS INC.-SRP2023-003140

PATIENT

DRUGS (9)
  1. ETEPLIRSEN [Suspect]
     Active Substance: ETEPLIRSEN
     Indication: Duchenne muscular dystrophy
     Dosage: 100 MILLIGRAM/KILOGRAM, WEEKLY
     Route: 042
     Dates: start: 20230111, end: 20230302
  2. ETEPLIRSEN [Suspect]
     Active Substance: ETEPLIRSEN
     Dosage: 100 MILLIGRAM/KILOGRAM, WEEKLY
     Route: 042
     Dates: start: 20230315
  3. PREDNISOLONE [Concomitant]
     Active Substance: PREDNISOLONE
     Indication: Duchenne muscular dystrophy
     Dosage: 0.75 MILLIGRAM/KILOGRAM, QD
     Route: 048
     Dates: start: 20220405
  4. PREDNISOLONE [Concomitant]
     Active Substance: PREDNISOLONE
     Dosage: 0.5 MILLIGRAM/KILOGRAM, QD
     Route: 048
  5. PREDNISOLONE [Concomitant]
     Active Substance: PREDNISOLONE
     Indication: Duchenne muscular dystrophy
     Dosage: 10 MILLIGRAM, QD
     Route: 048
     Dates: start: 20220610, end: 20230306
  6. PREDNISOLONE [Concomitant]
     Active Substance: PREDNISOLONE
     Dosage: 5 MILLIGRAM, QD
     Route: 048
     Dates: start: 20230307, end: 20230314
  7. PREDNISOLONE [Concomitant]
     Active Substance: PREDNISOLONE
     Dosage: 10 MILLIGRAM, QD
     Route: 048
     Dates: start: 20230315
  8. CALCIUM [Concomitant]
     Active Substance: CALCIUM
     Indication: Supplementation therapy
     Dosage: 250 MILLIGRAM, QD
     Route: 048
     Dates: start: 20221119
  9. PANTOPRAZOLE [Concomitant]
     Active Substance: PANTOPRAZOLE
     Indication: Gastritis
     Dosage: 20 MILLIGRAM, QD
     Route: 048
     Dates: start: 20220610, end: 20230305

REACTIONS (1)
  - Meningitis aseptic [Recovered/Resolved]

NARRATIVE: CASE EVENT DATE: 20230306
